FAERS Safety Report 22194512 (Version 1)
Quarter: 2023Q2

REPORT INFORMATION
  Report Type: Report from Study
  Country: US (occurrence: US)
  Receive Date: 20230411
  Receipt Date: 20230411
  Transmission Date: 20230721
  Serious: Yes (Hospitalization)
  Sender: FDA-Public Use
  Company Number: US-GBT-021495

PATIENT
  Age: 15 Year
  Sex: Female

DRUGS (22)
  1. OXBRYTA [Suspect]
     Active Substance: VOXELOTOR
     Indication: Anaemia
     Dates: start: 20210820
  2. cholecalciferol, vitamin D3 [Concomitant]
     Indication: Vitamin D deficiency
     Dosage: DOSAGE: 2000 U 50 MCG (2,000 UNIT) TABLET
     Route: 048
     Dates: start: 20191219
  3. MS CONTIN [Concomitant]
     Active Substance: MORPHINE SULFATE
     Dosage: PRN 12 EXTENDED RELEASE TABLET
     Route: 048
     Dates: start: 20190311
  4. hydrocodone-acetaminophen (locrcet) [Concomitant]
     Indication: Sickle cell disease
     Dosage: 5-325 MG TABLET, EVERY 6 HRS PRN
     Route: 048
     Dates: start: 20180816
  5. hydroxyurea (hydrea) [Concomitant]
     Indication: Sickle cell disease
     Dosage: 1000 M-F, 1500 SS QD
     Route: 048
     Dates: start: 20220504
  6. MOTRIN [Concomitant]
     Active Substance: IBUPROFEN
     Indication: Sickle cell disease
     Route: 048
     Dates: start: 20210520
  7. MOTRIN [Concomitant]
     Active Substance: IBUPROFEN
     Indication: Sickle cell disease
     Dosage: 400 MG Q6 PRN
     Route: 048
     Dates: start: 20200504, end: 20210520
  8. CYCLOBENZAPRINE [Concomitant]
     Active Substance: CYCLOBENZAPRINE
     Indication: Sickle cell disease
     Dosage: TIME INTERVAL: 0.33333333 DAYS: PRN
     Route: 048
     Dates: start: 20200809
  9. folic acid (folvite) [Concomitant]
     Indication: Sickle cell disease
     Route: 048
     Dates: start: 20120414
  10. MORPHINE [Concomitant]
     Active Substance: MORPHINE
     Indication: Sickle cell anaemia with crisis
     Dosage: 2MG/ML
     Route: 042
     Dates: start: 20210211, end: 20210211
  11. MORPHINE [Concomitant]
     Active Substance: MORPHINE
     Indication: Sickle cell anaemia with crisis
     Dosage: 2MG/ML -PNR
     Route: 042
     Dates: start: 20210217, end: 20210217
  12. MORPHINE [Concomitant]
     Active Substance: MORPHINE
     Indication: Sickle cell anaemia with crisis
     Dosage: 2MG/DL
     Route: 042
     Dates: start: 20210803, end: 20210803
  13. KETOROLAC [Concomitant]
     Active Substance: KETOROLAC TROMETHAMINE
     Indication: Sickle cell disease
     Dosage: ONCE
     Route: 042
     Dates: start: 20220504, end: 20220504
  14. KETOROLAC [Concomitant]
     Active Substance: KETOROLAC TROMETHAMINE
     Indication: Sickle cell disease
     Dosage: ONCE
     Route: 042
     Dates: start: 20220921, end: 20220921
  15. KETOROLAC [Concomitant]
     Active Substance: KETOROLAC TROMETHAMINE
     Indication: Sickle cell disease
     Dosage: ONCE
     Route: 042
     Dates: start: 20221216, end: 20221216
  16. crizanlizumab (SEG101) [Concomitant]
     Indication: Sickle cell disease
     Route: 042
     Dates: start: 20190416, end: 20210421
  17. HYDROMORPHONE [Concomitant]
     Active Substance: HYDROMORPHONE
     Indication: Sickle cell disease
     Route: 042
     Dates: start: 20220921, end: 20220921
  18. HYDROMORPHONE [Concomitant]
     Active Substance: HYDROMORPHONE
     Indication: Sickle cell disease
     Dosage: TIME INTERVAL: 0.33333333 DAYS
     Dates: start: 20220922, end: 20220922
  19. HYDROMORPHONE [Concomitant]
     Active Substance: HYDROMORPHONE
     Indication: Sickle cell disease
     Dosage: TIME INTERVAL: 0.33333333 DAYS
     Route: 042
     Dates: start: 20221216, end: 20221216
  20. AZITHROMYCIN [Concomitant]
     Active Substance: AZITHROMYCIN
     Indication: Sickle cell disease
     Dosage: 500 MG ONCE
     Route: 048
     Dates: start: 20220921, end: 20220921
  21. ketorolac (TORADOL) [Concomitant]
     Indication: Sickle cell disease
     Dosage: 30 MG/ML, ONCE
     Route: 042
     Dates: start: 20201202, end: 20201202
  22. ketorolac (TORADOL) [Concomitant]
     Indication: Sickle cell disease
     Dosage: ONCE
     Route: 042
     Dates: start: 20210803, end: 20210803

REACTIONS (1)
  - Tooth impacted [Recovered/Resolved]

NARRATIVE: CASE EVENT DATE: 20210201
